FAERS Safety Report 7324897-0 (Version None)
Quarter: 2011Q1

REPORT INFORMATION
  Report Type: 
  Country: None (occurrence: None)
  Receive Date: 20110301
  Receipt Date: 20110224
  Transmission Date: 20110831
  Serious: Yes (Other)
  Sender: FDA-Public Use
  Company Number: US-RB-015759-10

PATIENT
  Age: 42 Year
  Sex: Female

DRUGS (2)
  1. SUBOXONE [Suspect]
     Indication: DRUG DEPENDENCE
     Route: 060
     Dates: start: 20100901, end: 20101001
  2. SUBOXONE [Suspect]
     Indication: DRUG DEPENDENCE
     Route: 060
     Dates: start: 20110201

REACTIONS (6)
  - ORAL PAIN [None]
  - OFF LABEL USE [None]
  - HALLUCINATION [None]
  - INSOMNIA [None]
  - DEPRESSION [None]
  - NIGHT SWEATS [None]
